FAERS Safety Report 14951161 (Version 2)
Quarter: 2018Q2

REPORT INFORMATION
  Report Type: Spontaneous
  Country: AU (occurrence: AU)
  Receive Date: 20180530
  Receipt Date: 20180604
  Transmission Date: 20180711
  Serious: Yes (Death)
  Sender: FDA-Public Use
  Company Number: AU-MYLANLABS-2018M1036264

PATIENT
  Age: 26 Year
  Sex: Female

DRUGS (6)
  1. VALIUM [Suspect]
     Active Substance: DIAZEPAM
     Indication: PRODUCT USED FOR UNKNOWN INDICATION
     Dosage: UNK
     Dates: start: 201407
  2. OXYCODONE [Suspect]
     Active Substance: OXYCODONE
     Indication: PRODUCT USED FOR UNKNOWN INDICATION
     Dosage: UNK
  3. DOXEPIN [Suspect]
     Active Substance: DOXEPIN
     Indication: PRODUCT USED FOR UNKNOWN INDICATION
     Dosage: UNK
  4. PARACETAMOL [Suspect]
     Active Substance: ACETAMINOPHEN
     Indication: PRODUCT USED FOR UNKNOWN INDICATION
     Dosage: UNK
  5. SERTRALINE [Suspect]
     Active Substance: SERTRALINE HYDROCHLORIDE
     Indication: PRODUCT USED FOR UNKNOWN INDICATION
     Dosage: UNK
  6. CODEINE PHOSPHATE HYDRATE [Suspect]
     Active Substance: CODEINE PHOSPHATE
     Dosage: UNK

REACTIONS (1)
  - Toxicity to various agents [Fatal]
